FAERS Safety Report 4660926-0 (Version None)
Quarter: 2005Q2

REPORT INFORMATION
  Report Type: 
  Country: None (occurrence: None)
  Receive Date: 20050511
  Receipt Date: 20050502
  Transmission Date: 20051028
  Serious: Yes (Hospitalization)
  Sender: FDA-Public Use
  Company Number: 214184

PATIENT
  Age: 8 Year
  Sex: Male
  Weight: 10.7 kg

DRUGS (1)
  1. NUTROPIN AQ [Suspect]
     Indication: GROWTH HORMONE DEFICIENCY
     Dosage: 1 MG, QD, SUBCUTANEOUS
     Route: 058
     Dates: start: 19990727

REACTIONS (9)
  - BLOOD CULTURE POSITIVE [None]
  - BONE SCAN ABNORMAL [None]
  - FALL [None]
  - JOINT INJURY [None]
  - OSTEOMYELITIS [None]
  - PAIN [None]
  - PYREXIA [None]
  - SEPSIS [None]
  - STAPHYLOCOCCAL INFECTION [None]
